FAERS Safety Report 5135429-X (Version None)
Quarter: 2006Q4

REPORT INFORMATION
  Report Type: 
  Country: None (occurrence: None)
  Receive Date: 20061026
  Receipt Date: 20061016
  Transmission Date: 20070319
  Serious: Yes (Hospitalization)
  Sender: FDA-Public Use
  Company Number: F1-EXT-2006-0061

PATIENT
  Age: 48 Year
  Sex: Female

DRUGS (2)
  1. RANIPLEX [Suspect]
     Route: 048
     Dates: start: 20060515, end: 20060820
  2. CORTICOID [Concomitant]
     Indication: NEPHROTIC SYNDROME
     Dosage: 20MG PER DAY
     Route: 065
     Dates: start: 19860101

REACTIONS (11)
  - CONFUSIONAL STATE [None]
  - DERMATITIS EXFOLIATIVE [None]
  - DIZZINESS POSTURAL [None]
  - DRUG RASH WITH EOSINOPHILIA AND SYSTEMIC SYMPTOMS [None]
  - EOSINOPHILIA [None]
  - ERYTHEMA [None]
  - GAMMA-GLUTAMYLTRANSFERASE INCREASED [None]
  - HEPATITIS [None]
  - HYPERSENSITIVITY [None]
  - PYREXIA [None]
  - TRANSAMINASES INCREASED [None]
